FAERS Safety Report 4578897-4 (Version None)
Quarter: 2005Q1

REPORT INFORMATION
  Report Type: 
  Country: None (occurrence: None)
  Receive Date: 20050211
  Receipt Date: 20040325
  Transmission Date: 20050727
  Serious: Yes (Hospitalization)
  Sender: FDA-Public Use
  Company Number: US-ABBOTT-04P-163-0254629-00

PATIENT
  Sex: Male
  Weight: 79.45 kg

DRUGS (5)
  1. DEPAKOTE [Suspect]
     Indication: SOCIAL PHOBIA
     Route: 048
     Dates: start: 20040101, end: 20040101
  2. DEPAKOTE [Suspect]
     Indication: OPPOSITIONAL DEFIANT DISORDER
     Route: 048
     Dates: start: 20030101, end: 20040101
  3. EFFEXOR [Concomitant]
     Indication: DRUG USE FOR UNKNOWN INDICATION
     Route: 048
  4. QUETIAPINE [Concomitant]
     Indication: SLEEP DISORDER
     Route: 048
  5. PAROXETINE HYDROCHLORIDE [Concomitant]
     Indication: DRUG USE FOR UNKNOWN INDICATION
     Route: 048

REACTIONS (4)
  - FEELING ABNORMAL [None]
  - GUN SHOT WOUND [None]
  - LOSS OF CONSCIOUSNESS [None]
  - OVERDOSE [None]
